FAERS Safety Report 14510074 (Version 2)
Quarter: 2018Q1

REPORT INFORMATION
  Report Type: Spontaneous
  Country: ES (occurrence: ES)
  Receive Date: 20180209
  Receipt Date: 20180222
  Transmission Date: 20180509
  Serious: Yes (Other)
  Sender: FDA-Public Use
  Company Number: ES-OTSUKA-2018_003304

PATIENT
  Age: 46 Year
  Sex: Female
  Weight: 50 kg

DRUGS (2)
  1. JINARC [Suspect]
     Active Substance: TOLVAPTAN
     Indication: CONGENITAL CYSTIC KIDNEY DISEASE
     Dosage: 30 MG, UNK (56 TABLETS (28X30 MG + 28X60MG)
     Route: 048
     Dates: start: 20170828, end: 20171219
  2. JINARC [Suspect]
     Active Substance: TOLVAPTAN
     Dosage: 60 MG, UNK (56 TABLETS 28X30 MG + 28X60MG)
     Route: 048
     Dates: start: 20170828, end: 20171219

REACTIONS (1)
  - Alanine aminotransferase increased [Recovering/Resolving]

NARRATIVE: CASE EVENT DATE: 201712
